FAERS Safety Report 12919547 (Version 10)
Quarter: 2017Q2

REPORT INFORMATION
  Report Type: Report from Study
  Country: BR (occurrence: BR)
  Receive Date: 20161107
  Receipt Date: 20170612
  Transmission Date: 20170830
  Serious: Yes (Hospitalization, Other)
  Sender: FDA-Public Use
  Company Number: BR-GLAXOSMITHKLINE-BR2015GSK169124

PATIENT
  Sex: Female
  Weight: 67 kg

DRUGS (6)
  1. BELIMUMAB [Suspect]
     Active Substance: BELIMUMAB
     Dosage: UNK
     Route: 042
     Dates: start: 20161109
  2. BELIMUMAB [Suspect]
     Active Substance: BELIMUMAB
     Dosage: UNK
     Route: 042
     Dates: start: 20160727
  3. BELIMUMAB [Suspect]
     Active Substance: BELIMUMAB
     Dosage: UNK
     Route: 042
     Dates: start: 20170131
  4. BELIMUMAB [Suspect]
     Active Substance: BELIMUMAB
     Indication: SYSTEMIC LUPUS ERYTHEMATOSUS
     Dosage: UNK
     Route: 042
     Dates: start: 20150615
  5. BELIMUMAB [Suspect]
     Active Substance: BELIMUMAB
     Dosage: UNK
     Route: 042
     Dates: start: 20161221
  6. BELIMUMAB [Suspect]
     Active Substance: BELIMUMAB
     Dosage: UNK
     Route: 042
     Dates: start: 20160504

REACTIONS (11)
  - Drug dose omission [Not Recovered/Not Resolved]
  - Product availability issue [Unknown]
  - Seizure [Unknown]
  - Tracheostomy [Unknown]
  - Dyspnoea [Unknown]
  - Condition aggravated [Unknown]
  - Adenoidal disorder [Unknown]
  - Throat tightness [Unknown]
  - Speech disorder [Unknown]
  - Tendon pain [Unknown]
  - Inappropriate schedule of drug administration [Recovered/Resolved]
